FAERS Safety Report 16320879 (Version 1)
Quarter: 2019Q2

REPORT INFORMATION
  Report Type: Spontaneous
  Country: US (occurrence: US)
  Receive Date: 20190516
  Receipt Date: 20190516
  Transmission Date: 20190711
  Serious: No
  Sender: FDA-Public Use
  Company Number: US-GLAXOSMITHKLINE-US2019083029

PATIENT
  Age: 64 Year
  Sex: Female

DRUGS (2)
  1. NICODERM CQ [Suspect]
     Active Substance: NICOTINE
     Indication: SMOKING CESSATION THERAPY
     Dosage: 7 MG, UNK
  2. NICODERM CQ [Suspect]
     Active Substance: NICOTINE
     Dosage: 7 MG, UNK

REACTIONS (4)
  - Psychomotor hyperactivity [Not Recovered/Not Resolved]
  - Adverse drug reaction [Unknown]
  - Energy increased [Not Recovered/Not Resolved]
  - Erythema [Not Recovered/Not Resolved]
